FAERS Safety Report 15150262 (Version 1)
Quarter: 2018Q3

REPORT INFORMATION
  Report Type: Spontaneous
  Country: DE (occurrence: DE)
  Receive Date: 20180716
  Receipt Date: 20180716
  Transmission Date: 20181010
  Serious: Yes (Hospitalization)
  Sender: FDA-Public Use
  Company Number: DE-US WORLDMEDS, LLC-STA_00016727

PATIENT
  Age: 77 Year
  Sex: Male

DRUGS (2)
  1. APO?GO PEN 10MG/ML [Suspect]
     Active Substance: APOMORPHINE HYDROCHLORIDE
     Indication: PARKINSON^S DISEASE
     Dosage: 2MG
     Route: 058
     Dates: start: 20120717, end: 20120720
  2. APOMORPHINE HYDROCHLORIDE [Suspect]
     Active Substance: APOMORPHINE HYDROCHLORIDE
     Indication: PARKINSON^S DISEASE
     Dosage: 2MG / 1.5MG/H
     Route: 058
     Dates: start: 20120717, end: 20120723

REACTIONS (5)
  - Somnolence [Unknown]
  - Psychomotor hyperactivity [Unknown]
  - Abnormal behaviour [Unknown]
  - Dementia [Unknown]
  - Sleep disorder [Unknown]

NARRATIVE: CASE EVENT DATE: 20120718
